FAERS Safety Report 17884861 (Version 2)
Quarter: 2020Q2

REPORT INFORMATION
  Report Type: Spontaneous
  Country: US (occurrence: US)
  Receive Date: 20200611
  Receipt Date: 20200626
  Transmission Date: 20200714
  Serious: Yes (Hospitalization)
  Sender: FDA-Public Use
  Company Number: US-VERTEX PHARMACEUTICALS-2020-012483

PATIENT
  Age: 32 Year
  Sex: Male

DRUGS (23)
  1. MONTELUKAST [Concomitant]
     Active Substance: MONTELUKAST SODIUM
  2. VITAMIN D [COLECALCIFEROL] [Concomitant]
     Active Substance: CHOLECALCIFEROL
  3. METOPROLOL SUCCINATE. [Concomitant]
     Active Substance: METOPROLOL SUCCINATE
  4. AMLODIPINE [Concomitant]
     Active Substance: AMLODIPINE BESYLATE
  5. LEVOFLOXACIN. [Concomitant]
     Active Substance: LEVOFLOXACIN
  6. ONDANSETRON [Concomitant]
     Active Substance: ONDANSETRON
  7. AZITHROMYCIN ANHYDROUS. [Concomitant]
     Active Substance: AZITHROMYCIN ANHYDROUS
  8. MATZIM LA [Concomitant]
     Active Substance: DILTIAZEM HYDROCHLORIDE
  9. OSELTAMIVIR [Concomitant]
     Active Substance: OSELTAMIVIR
  10. PREDNISONE. [Concomitant]
     Active Substance: PREDNISONE
  11. ESCITALOPRAM [Concomitant]
     Active Substance: ESCITALOPRAM OXALATE
  12. VENLAFAXINE [Concomitant]
     Active Substance: VENLAFAXINE HYDROCHLORIDE
  13. ALPRAZOLAM. [Concomitant]
     Active Substance: ALPRAZOLAM
  14. BUSPIRONE [Concomitant]
     Active Substance: BUSPIRONE HYDROCHLORIDE
  15. CLONAZEPAM. [Concomitant]
     Active Substance: CLONAZEPAM
  16. LEVALBUTEROL [LEVOSALBUTAMOL] [Concomitant]
     Active Substance: LEVALBUTEROL
  17. PROPRANOLOL [Concomitant]
     Active Substance: PROPRANOLOL HYDROCHLORIDE
  18. ALBUTEROL [SALBUTAMOL] [Concomitant]
     Active Substance: ALBUTEROL
  19. MIRTAZAPINE. [Concomitant]
     Active Substance: MIRTAZAPINE
  20. PULMOZYME [Concomitant]
     Active Substance: DORNASE ALFA
  21. SYMDEKO [Suspect]
     Active Substance: IVACAFTOR\TEZACAFTOR
     Indication: CYSTIC FIBROSIS
     Dosage: 100MG TEZACAFTOR/150MG IVACAFTOR,QAM AND 150MG IVACAFTOR, QPM
     Route: 048
     Dates: start: 20181115
  22. LORATADINE. [Concomitant]
     Active Substance: LORATADINE
  23. SYMBICORT [Concomitant]
     Active Substance: BUDESONIDE\FORMOTEROL FUMARATE DIHYDRATE

REACTIONS (1)
  - Mycobacterial infection [Unknown]

NARRATIVE: CASE EVENT DATE: 20200529
